FAERS Safety Report 7829806-3 (Version None)
Quarter: 2011Q4

REPORT INFORMATION
  Report Type: 
  Country: None (occurrence: None)
  Receive Date: 20111021
  Receipt Date: 20111012
  Transmission Date: 20120403
  Serious: Yes (Other)
  Sender: FDA-Public Use
  Company Number: US-JNJFOC-20111007210

PATIENT
  Age: 40 Year
  Sex: Female

DRUGS (2)
  1. HALDOL [Suspect]
     Indication: PRODUCT USED FOR UNKNOWN INDICATION
     Route: 065
  2. SAPHRIS [Suspect]
     Indication: BIPOLAR DISORDER
     Route: 065

REACTIONS (2)
  - TARDIVE DYSKINESIA [None]
  - WEIGHT INCREASED [None]
